FAERS Safety Report 15117879 (Version 2)
Quarter: 2018Q3

REPORT INFORMATION
  Report Type: Spontaneous
  Country: US (occurrence: US)
  Receive Date: 20180706
  Receipt Date: 20180808
  Transmission Date: 20181010
  Serious: Yes (Hospitalization, Other)
  Sender: FDA-Public Use
  Company Number: US-JAZZ-2018-US-010571

PATIENT
  Age: 37 Year
  Sex: Female

DRUGS (2)
  1. CLONAZEPAM. [Suspect]
     Active Substance: CLONAZEPAM
     Indication: PRODUCT USED FOR UNKNOWN INDICATION
     Route: 048
  2. XYREM [Suspect]
     Active Substance: SODIUM OXYBATE
     Indication: PRODUCT USED FOR UNKNOWN INDICATION
     Route: 048

REACTIONS (12)
  - Tachycardia [Recovered/Resolved]
  - Sedation complication [Unknown]
  - Lethargy [Recovered/Resolved]
  - Overdose [Unknown]
  - Respiratory depression [Unknown]
  - Suicide attempt [Unknown]
  - Somnolence [Recovered/Resolved]
  - Hypertension [Recovered/Resolved]
  - Depressed level of consciousness [Unknown]
  - Urinary incontinence [Recovered/Resolved]
  - Vomiting [Recovered/Resolved]
  - Nystagmus [Recovered/Resolved]
